FAERS Safety Report 11427568 (Version 1)
Quarter: 2015Q3

REPORT INFORMATION
  Report Type: Spontaneous
  Country: US (occurrence: US)
  Receive Date: 20150827
  Receipt Date: 20150827
  Transmission Date: 20151125
  Serious: No
  Sender: FDA-Public Use
  Company Number: US-SA-2015SA024089

PATIENT
  Sex: Female

DRUGS (2)
  1. IRBESARTAN WINTHROP [Suspect]
     Active Substance: IRBESARTAN
     Dosage: FORM: LONG OVAL PILL
     Route: 065
  2. IRBESARTAN WINTHROP [Suspect]
     Active Substance: IRBESARTAN
     Dosage: FORM: PINKISH PEACHY PILL

REACTIONS (2)
  - Blood pressure increased [Unknown]
  - Palpitations [Unknown]
